FAERS Safety Report 9848173 (Version 1)
Quarter: 2014Q1

REPORT INFORMATION
  Report Type: Spontaneous
  Country: US (occurrence: US)
  Receive Date: 20140128
  Receipt Date: 20140128
  Transmission Date: 20141002
  Serious: No
  Sender: FDA-Public Use
  Company Number: US-PFIZER INC-2014021662

PATIENT
  Age: 50 Year
  Sex: Female
  Weight: 66.21 kg

DRUGS (3)
  1. LYRICA [Suspect]
     Indication: FIBROMYALGIA
     Dosage: UNK
  2. LYRICA [Suspect]
     Dosage: 100 OR 150MG, 1X/DAY
  3. VICODIN [Concomitant]
     Indication: OSTEOARTHRITIS
     Dosage: UNK

REACTIONS (1)
  - Attention deficit/hyperactivity disorder [Unknown]
